FAERS Safety Report 6116377-5 (Version None)
Quarter: 2009Q1

REPORT INFORMATION
  Report Type: 
  Country: None (occurrence: None)
  Receive Date: 20090314
  Receipt Date: 20081209
  Transmission Date: 20090719
  Serious: No
  Sender: FDA-Public Use
  Company Number: US-ABBOTT-08P-163-0492010-00

PATIENT
  Sex: Male
  Weight: 79.45 kg

DRUGS (11)
  1. HUMIRA [Suspect]
     Indication: PSORIATIC ARTHROPATHY
     Route: 058
     Dates: start: 20080101, end: 20080301
  2. HUMIRA [Suspect]
     Dates: start: 20081125
  3. DIAZEPAM [Concomitant]
     Indication: ANXIETY
     Route: 048
  4. DIAZEPAM [Concomitant]
     Indication: URINARY INCONTINENCE
  5. VICODIN [Concomitant]
     Indication: BACK PAIN
     Dosage: 5/500
     Route: 048
  6. LIDOCAINE [Concomitant]
     Indication: BACK PAIN
     Route: 061
  7. DILTIAZEM [Concomitant]
     Indication: ANORECTAL DISCOMFORT
     Dosage: COMPOUNDED PER PHARMACY
     Route: 061
  8. DILTIAZEM [Concomitant]
     Indication: RECTAL FISSURE
  9. DOXAZOSIN MESYLATE [Concomitant]
     Indication: URINARY INCONTINENCE
     Dosage: UNSURE OF STRENGTH
     Route: 048
  10. HYDROCORTISONE ACETATE [Concomitant]
     Indication: PROCTALGIA
     Route: 054
  11. HYDROCORTISONE ACETATE [Concomitant]
     Indication: RECTAL SPASM

REACTIONS (3)
  - HAEMATOCHEZIA [None]
  - TOOTHACHE [None]
  - WISDOM TEETH REMOVAL [None]
